FAERS Safety Report 10273505 (Version 1)
Quarter: 2014Q2

REPORT INFORMATION
  Report Type: Spontaneous
  Country: US (occurrence: None)
  Receive Date: 20140630
  Receipt Date: 20140630
  Transmission Date: 20141212
  Serious: No
  Sender: FDA-Public Use
  Company Number: None

PATIENT
  Age: 24 Year
  Sex: Female
  Weight: 110.68 kg

DRUGS (1)
  1. NEXPLANON [Suspect]
     Indication: CONTRACEPTION
     Dosage: 1 IMPLANT?LAST 3 YEARS?GIVEN INTO /UNDER THE SKIN
     Dates: start: 20130716, end: 20140625

REACTIONS (10)
  - Weight increased [None]
  - Menstruation irregular [None]
  - Dizziness [None]
  - Dizziness postural [None]
  - Mood swings [None]
  - Anger [None]
  - Anger [None]
  - Depressed mood [None]
  - Fatigue [None]
  - Sleep disorder [None]
